FAERS Safety Report 5421770-X (Version None)
Quarter: 2007Q3

REPORT INFORMATION
  Report Type: 
  Country: None (occurrence: None)
  Receive Date: 20070821
  Receipt Date: 20070725
  Transmission Date: 20080115
  Serious: Yes (Other)
  Sender: FDA-Public Use
  Company Number: DE-PFIZER INC-2007062223

PATIENT
  Sex: Male
  Weight: 72 kg

DRUGS (3)
  1. VIAGRA [Suspect]
     Indication: ERECTILE DYSFUNCTION
     Route: 048
  2. VOTUMUMAB [Concomitant]
     Route: 048
  3. ALL OTHER THERAPEUTIC PRODUCTS [Concomitant]
     Route: 048

REACTIONS (4)
  - EYE HAEMORRHAGE [None]
  - LEUKOPENIA [None]
  - RETINAL VEIN OCCLUSION [None]
  - THROMBOCYTOPENIA [None]
